FAERS Safety Report 7094244-0 (Version None)
Quarter: 2010Q4

REPORT INFORMATION
  Report Type: 
  Country: None (occurrence: None)
  Receive Date: 20101102
  Receipt Date: 20101018
  Transmission Date: 20110411
  Serious: Yes (Other)
  Sender: FDA-Public Use
  Company Number: 2010-3585

PATIENT
  Age: 70 Year
  Sex: Male

DRUGS (1)
  1. APO-GO PFS (APO-GO) (APOMORPHINE HYDROCHLORIDE) (APOMORPHINE HYDROCHLO [Suspect]
     Indication: PRODUCT USED FOR UNKNOWN INDICATION
     Dosage: 16 HOURS/A DAY, (16 HOURS/A DAY),SUBCUTANEOUS
     Route: 058
     Dates: start: 20100825

REACTIONS (1)
  - LOSS OF CONSCIOUSNESS [None]
